FAERS Safety Report 8478607-4 (Version None)
Quarter: 2012Q2

REPORT INFORMATION
  Report Type: 
  Country: None (occurrence: None)
  Receive Date: 20120629
  Receipt Date: 20120628
  Transmission Date: 20120825
  Serious: Yes (Death)
  Sender: FDA-Public Use
  Company Number: PHHY2012US055040

PATIENT
  Age: 43 Year
  Sex: Male

DRUGS (5)
  1. LITHIUM CARBONATE [Suspect]
     Indication: MANIA
     Dosage: 600 MG
  2. CARBIDOPA + LEVODOPA [Concomitant]
  3. VALPROATE SODIUM [Suspect]
     Indication: MANIA
     Dosage: 1500 MG
  4. QUETIAPINE [Suspect]
     Indication: MANIA
     Dosage: 300 MG
  5. ARIPIPRAZOLE [Suspect]
     Indication: MANIA
     Dosage: 2 MG

REACTIONS (2)
  - COMPLETED SUICIDE [None]
  - DRUG INEFFECTIVE [None]
